FAERS Safety Report 6203363-X (Version None)
Quarter: 2009Q2

REPORT INFORMATION
  Report Type: 
  Country: None (occurrence: None)
  Receive Date: 20090521
  Receipt Date: 20090512
  Transmission Date: 20091009
  Serious: Yes (Disabling)
  Sender: FDA-Public Use
  Company Number: 8046330

PATIENT
  Sex: Male

DRUGS (2)
  1. ERGOCALCIFEROL [Suspect]
     Dates: start: 20080201
  2. VASCALPHA [Concomitant]

REACTIONS (7)
  - BEDRIDDEN [None]
  - BONE PAIN [None]
  - CHEST PAIN [None]
  - IMPAIRED WORK ABILITY [None]
  - INJECTION SITE PAIN [None]
  - MUSCLE SPASMS [None]
  - NECK PAIN [None]
